FAERS Safety Report 19324010 (Version 1)
Quarter: 2021Q2

REPORT INFORMATION
  Report Type: Spontaneous
  Country: GB (occurrence: GB)
  Receive Date: 20210528
  Receipt Date: 20210528
  Transmission Date: 20210717
  Serious: Yes (Hospitalization)
  Sender: FDA-Public Use
  Company Number: GB-TEVA-2021-GB-1915504

PATIENT
  Sex: Female

DRUGS (11)
  1. LEVOTHYROXINE. [Concomitant]
     Active Substance: LEVOTHYROXINE
     Dosage: 1 OM, STRENGTH : 100MICROGRAM
  2. CARBOCISTEINE [Concomitant]
     Active Substance: CARBOCYSTEINE
     Dosage: 4 DOSAGE FORMS DAILY; STRENGTH : 375MG, UNIT DOSE : 1 DOSAGE FORMS
  3. WARFARIN [Suspect]
     Active Substance: WARFARIN
     Route: 065
  4. BUMETANIDE. [Concomitant]
     Active Substance: BUMETANIDE
     Dosage: STRENGTH : 1MG, 3MG AM 2MG LUNCH TIME
  5. LEVOTHYROXINE. [Concomitant]
     Active Substance: LEVOTHYROXINE
     Dosage: 1 OM, STRENGTH : 25 MICROGRAM
  6. QUININE [Concomitant]
     Active Substance: QUININE
     Dosage: 200 MILLIGRAM DAILY; ON, STRENGTH : 200MG
  7. DIGOXIN. [Concomitant]
     Active Substance: DIGOXIN
     Dosage: 125 MICROGRAM DAILY; STRENGTH : 125MICROGRAM,  ON
  8. MONTELUKAST [Concomitant]
     Active Substance: MONTELUKAST SODIUM
     Dosage: 10 MILLIGRAM DAILY; ON, STRENGTH : 10MG
  9. ATORVASTATIN [Concomitant]
     Active Substance: ATORVASTATIN
     Dosage: 40 MILLIGRAM DAILY; STRENGTH : 40 MG, ON
  10. SPIRONOLACTONE. [Concomitant]
     Active Substance: SPIRONOLACTONE
     Dosage: 1 DOSAGE FORMS DAILY; 28 TABLET , STRENGTH : 50 MG
  11. VERAPAMIL [Concomitant]
     Active Substance: VERAPAMIL HYDROCHLORIDE
     Dosage: 3 DOSAGE FORMS DAILY; STRENGTH : 40MG, UNIT DOSE : 1 DOSAGE FORMS

REACTIONS (1)
  - Epistaxis [Recovered/Resolved]
